FAERS Safety Report 8599714 (Version 2)
Quarter: 2012Q4

REPORT INFORMATION
  Report Type: 
  Country: MX (occurrence: MX)
  Receive Date: 20120605
  Receipt Date: 20120926
  Transmission Date: 20130627
  Serious: No
  Sender: FDA-Public Use
  Company Number: MX-JNJFOC-20120601550

PATIENT
  Sex: Female

DRUGS (2)
  1. IMODIUM PLUS [Suspect]
     Route: 065
  2. IMODIUM PLUS [Suspect]
     Indication: PRODUCT USED FOR UNKNOWN INDICATION
     Route: 065

REACTIONS (1)
  - Dysuria [Unknown]
